FAERS Safety Report 14873395 (Version 2)
Quarter: 2018Q2

REPORT INFORMATION
  Report Type: Spontaneous
  Country: US (occurrence: US)
  Receive Date: 20180510
  Receipt Date: 20180516
  Transmission Date: 20180711
  Serious: No
  Sender: FDA-Public Use
  Company Number: US-PFIZER INC-2018190236

PATIENT
  Age: 64 Year
  Sex: Male

DRUGS (9)
  1. GABAPENTIN. [Suspect]
     Active Substance: GABAPENTIN
     Indication: INSOMNIA
     Dosage: 600 MG, ONCE A DAY (AT NIGHT)
  2. OXYCODONE [Concomitant]
     Active Substance: OXYCODONE
     Indication: INSOMNIA
     Dosage: UNK
  3. LORAZEPAM. [Concomitant]
     Active Substance: LORAZEPAM
     Indication: INSOMNIA
     Dosage: 15 MG, AS NEEDED (PRN)
     Route: 048
  4. GABAPENTIN. [Suspect]
     Active Substance: GABAPENTIN
     Indication: HYPOAESTHESIA
  5. GABAPENTIN. [Suspect]
     Active Substance: GABAPENTIN
     Indication: PAIN IN EXTREMITY
  6. OXYCODONE [Concomitant]
     Active Substance: OXYCODONE
     Indication: PAIN
  7. GABAPENTIN. [Suspect]
     Active Substance: GABAPENTIN
     Indication: NEURALGIA
     Dosage: 300 MG, ONCE A DAY (AT NIGHT)
     Route: 048
     Dates: start: 20180421
  8. LORAZEPAM. [Concomitant]
     Active Substance: LORAZEPAM
     Indication: PAIN
  9. VERAPAMIL [Concomitant]
     Active Substance: VERAPAMIL HYDROCHLORIDE
     Indication: VASODILATATION
     Dosage: 100 MG, ONCE A DAY
     Route: 048

REACTIONS (4)
  - Dizziness [Not Recovered/Not Resolved]
  - Somnolence [Not Recovered/Not Resolved]
  - Intentional product misuse [Unknown]
  - Drug ineffective [Unknown]

NARRATIVE: CASE EVENT DATE: 20180421
